FAERS Safety Report 9538443 (Version 1)
Quarter: 2013Q3

REPORT INFORMATION
  Report Type: Spontaneous
  Country: US (occurrence: None)
  Receive Date: 20130918
  Receipt Date: 20130918
  Transmission Date: 20140515
  Serious: No
  Sender: FDA-Public Use
  Company Number: None

PATIENT
  Age: 72 Year
  Sex: Female

DRUGS (9)
  1. LEVOTHYROXINE SODIUM [Suspect]
     Indication: THYROID DISORDER
     Dosage: ONE TABLET
     Route: 048
     Dates: start: 20130610, end: 20130708
  2. MICARDIS [Concomitant]
  3. SYNTHROID 75 MCG [Concomitant]
  4. BIO-TEARS [Concomitant]
  5. VIT C [Concomitant]
  6. VIT B COMPLEX WITH C [Suspect]
  7. VIT D [Concomitant]
  8. MULTI-VIT [Concomitant]
  9. CALCIUM [Concomitant]

REACTIONS (5)
  - Depression [None]
  - Alopecia [None]
  - Dizziness [None]
  - Weight decreased [None]
  - Nervousness [None]
